FAERS Safety Report 9288916 (Version 2)
Quarter: 2013Q2

REPORT INFORMATION
  Report Type: Spontaneous
  Country: US (occurrence: US)
  Receive Date: 20130514
  Receipt Date: 20130610
  Transmission Date: 20140414
  Serious: Yes (Hospitalization)
  Sender: FDA-Public Use
  Company Number: US-GLAXOSMITHKLINE-A1022803A

PATIENT
  Age: 73 Year
  Sex: Female

DRUGS (14)
  1. ADVAIR [Suspect]
     Indication: CHRONIC OBSTRUCTIVE PULMONARY DISEASE
     Dosage: 1PUFF TWICE PER DAY
     Route: 055
     Dates: start: 2008
  2. SPIRIVA [Concomitant]
  3. UNKNOWN [Concomitant]
  4. AVELOX [Concomitant]
  5. ASPIRIN [Concomitant]
  6. LEVOTHYROXINE [Concomitant]
  7. BENICAR [Concomitant]
  8. CALTRATE [Concomitant]
  9. PRILOSEC [Concomitant]
  10. TRIAMTERENE [Concomitant]
  11. MVI [Concomitant]
  12. RELION HUMULIN N [Concomitant]
  13. COREG [Concomitant]
  14. INSULIN R [Concomitant]

REACTIONS (5)
  - Dyspnoea [Recovered/Resolved]
  - Palpitations [Recovered/Resolved]
  - Vomiting projectile [Recovered/Resolved]
  - Chest pain [Recovered/Resolved]
  - Fatigue [Recovered/Resolved]
